FAERS Safety Report 16593363 (Version 1)
Quarter: 2019Q3

REPORT INFORMATION
  Report Type: Spontaneous
  Country: US (occurrence: US)
  Receive Date: 20190718
  Receipt Date: 20190718
  Transmission Date: 20191004
  Serious: No
  Sender: FDA-Public Use
  Company Number: US-ELI_LILLY_AND_COMPANY-US201907006442

PATIENT
  Sex: Male

DRUGS (2)
  1. VITAMIN D NOS [Concomitant]
     Active Substance: VITAMIN D NOS
     Indication: PRODUCT USED FOR UNKNOWN INDICATION
     Dosage: UNK, UNKNOWN
  2. HUMATROPE [Suspect]
     Active Substance: SOMATROPIN
     Indication: PRODUCT USED FOR UNKNOWN INDICATION
     Dosage: 8.8 U, UNKNOWN
     Route: 065
     Dates: start: 201905

REACTIONS (3)
  - Injection site injury [Recovered/Resolved]
  - Fear of injection [Recovered/Resolved]
  - Injury associated with device [Recovered/Resolved]
